FAERS Safety Report 7016405-9 (Version None)
Quarter: 2010Q3

REPORT INFORMATION
  Report Type: 
  Country: None (occurrence: None)
  Receive Date: 20100927
  Receipt Date: 20100920
  Transmission Date: 20110219
  Serious: Yes (Other)
  Sender: FDA-Public Use
  Company Number: PHFR2010GB02077

PATIENT
  Sex: Female

DRUGS (19)
  1. CLOZARIL [Suspect]
     Indication: SCHIZOAFFECTIVE DISORDER
     Dosage: 200 MG/DAY
     Route: 048
     Dates: start: 20100601, end: 20100811
  2. ANTIPSYCHOTICS [Concomitant]
     Indication: TARDIVE DYSKINESIA
  3. ARIPIPRAZOLE [Concomitant]
     Dosage: 5 MG, QD, AM
  4. ACETYLSALICYLIC ACID [Concomitant]
     Dosage: 75 MG, QD, AM
  5. SIMVASTATIN [Concomitant]
     Dosage: 40 MG, QD, NOCTE
  6. GLICLAZIDE [Concomitant]
     Dosage: 80 MG, QD2SDO
  7. LEVOTHYROXINE SODIUM [Concomitant]
     Dosage: 175 UG, QD, MANE
  8. LANSOPRAZOLE [Concomitant]
     Dosage: 30 MG, QD
  9. METFORMIN [Concomitant]
     Dosage: 1000 MG, TID
  10. ACETAMINOPHEN [Concomitant]
     Dosage: 1000 MG PRN UP TO QDS
  11. ATROVENT [Concomitant]
     Dosage: 2 DF, QID
  12. SERETIDE ^ALLEN + HANBURYS LTD^ [Concomitant]
     Dosage: 2 DF, BID
  13. LITHIUM CARBONATE [Concomitant]
     Dosage: 250 MG, TID
  14. FERROUS FUMARATE [Concomitant]
     Dosage: 210 MG, TID
  15. PIOGLITAZONE [Concomitant]
     Dosage: 15 MG, QD, AM
  16. OXYBUTYNIN [Concomitant]
     Dosage: 5 MG, QD
  17. TETRABENAZINE [Concomitant]
     Dosage: 12.5 MG, QD
  18. BISOPROLOL FUMARATE [Concomitant]
     Dosage: 1.25 MG, QD
  19. RAMIPRIL [Concomitant]
     Dosage: 1.25 MG, QD

REACTIONS (3)
  - CARDIAC FAILURE [None]
  - EJECTION FRACTION DECREASED [None]
  - LEFT VENTRICULAR DYSFUNCTION [None]
